FAERS Safety Report 17483127 (Version 1)
Quarter: 2020Q1

REPORT INFORMATION
  Report Type: Spontaneous
  Country: US (occurrence: US)
  Receive Date: 20200219
  Receipt Date: 20200219
  Transmission Date: 20200409
  Serious: No
  Sender: FDA-Public Use
  Company Number: None

PATIENT
  Age: 64 Year
  Sex: Female

DRUGS (2)
  1. ORENCIA [Suspect]
     Active Substance: ABATACEPT
     Indication: RHEUMATOID ARTHRITIS
     Route: 058
     Dates: start: 201901
  2. METHOTREXATE SDV [Concomitant]
     Active Substance: METHOTREXATE

REACTIONS (2)
  - Toothache [None]
  - Nasopharyngitis [None]

NARRATIVE: CASE EVENT DATE: 20200219
